FAERS Safety Report 5178030-4 (Version None)
Quarter: 2006Q4

REPORT INFORMATION
  Report Type: 
  Country: None (occurrence: None)
  Receive Date: 20061218
  Receipt Date: 20060728
  Transmission Date: 20070319
  Serious: No
  Sender: FDA-Public Use
  Company Number: US-AMGEN-KDL188275

PATIENT
  Age: 37 Year
  Sex: Female

DRUGS (1)
  1. ENBREL [Suspect]
     Indication: ANKYLOSING SPONDYLITIS
     Route: 058
     Dates: start: 20060728

REACTIONS (6)
  - AGITATION [None]
  - ERYTHEMA [None]
  - NAUSEA [None]
  - NERVOUSNESS [None]
  - RESTLESSNESS [None]
  - STOMACH DISCOMFORT [None]
